FAERS Safety Report 8723868 (Version 3)
Quarter: 2012Q4

REPORT INFORMATION
  Report Type: 
  Country: US (occurrence: US)
  Receive Date: 20120815
  Receipt Date: 20121003
  Transmission Date: 20130627
  Serious: No
  Sender: FDA-Public Use
  Company Number: US-PFIZER INC-2012194504

PATIENT
  Age: 73 Year
  Sex: Male

DRUGS (1)
  1. SUTENT [Suspect]
     Indication: GASTRIC CANCER
     Dosage: 12.5 mg, UNK
     Dates: start: 20120522, end: 20120522

REACTIONS (3)
  - Disease progression [Unknown]
  - Gastric cancer [Unknown]
  - Drug intolerance [Unknown]
